FAERS Safety Report 9728451 (Version 1)
Quarter: 2013Q4

REPORT INFORMATION
  Report Type: Spontaneous
  Country: AU (occurrence: AU)
  Receive Date: 20131204
  Receipt Date: 20131204
  Transmission Date: 20140711
  Serious: Yes (Disabling)
  Sender: FDA-Public Use
  Company Number: AU-ASTRAZENECA-2013SE87122

PATIENT
  Age: 21389 Day
  Sex: Female
  Weight: 70 kg

DRUGS (1)
  1. CRESTOR [Suspect]
     Route: 048
     Dates: start: 20110202

REACTIONS (5)
  - Pain [Recovered/Resolved]
  - Joint swelling [Recovered/Resolved]
  - Myalgia [Recovered/Resolved]
  - Arthralgia [Recovered/Resolved]
  - Amnesia [Recovered/Resolved]
